FAERS Safety Report 11279163 (Version 1)
Quarter: 2015Q3

REPORT INFORMATION
  Report Type: Spontaneous
  Country: US (occurrence: US)
  Receive Date: 20150717
  Receipt Date: 20150717
  Transmission Date: 20151125
  Serious: No
  Sender: FDA-Public Use
  Company Number: US-TAKEDA-2015TUS009262

PATIENT
  Age: 44 Year
  Sex: Female
  Weight: 126.8 kg

DRUGS (1)
  1. CONTRAVE [Suspect]
     Active Substance: BUPROPION HYDROCHLORIDE\NALTREXONE HYDROCHLORIDE
     Indication: OBESITY
     Dosage: 8MG/90MG; 1 DF, QD
     Route: 048
     Dates: start: 20150616, end: 201506

REACTIONS (4)
  - Nausea [Recovered/Resolved]
  - Condition aggravated [Recovered/Resolved]
  - Feeling jittery [Recovered/Resolved]
  - Inappropriate schedule of drug administration [Recovered/Resolved]

NARRATIVE: CASE EVENT DATE: 201506
